FAERS Safety Report 5742288-0 (Version None)
Quarter: 2008Q2

REPORT INFORMATION
  Report Type: 
  Country: None (occurrence: None)
  Receive Date: 20080519
  Receipt Date: 20080508
  Transmission Date: 20081010
  Serious: Yes (Hospitalization)
  Sender: FDA-Public Use
  Company Number: PHHY2008MX07526

PATIENT
  Age: 72 Year
  Sex: Female

DRUGS (2)
  1. AMARYL [Concomitant]
  2. DIOVAN HCT [Suspect]
     Indication: HYPERTENSION
     Dosage: 0.5 TABLET(160/12.5MG)/D
     Route: 048

REACTIONS (1)
  - HYPOGLYCAEMIA [None]
